FAERS Safety Report 20611249 (Version 1)
Quarter: 2022Q1

REPORT INFORMATION
  Report Type: Other
  Country: JP (occurrence: JP)
  Receive Date: 20220318
  Receipt Date: 20220318
  Transmission Date: 20220424
  Serious: Yes (Other)
  Sender: FDA-Public Use
  Company Number: JP-CHUGAI-2022008105

PATIENT
  Sex: Male

DRUGS (1)
  1. ACTEMRA [Suspect]
     Active Substance: TOCILIZUMAB
     Indication: Rheumatoid arthritis
     Dosage: 162 MILLIGRAM
     Route: 058

REACTIONS (2)
  - Internal haemorrhage [Unknown]
  - Pain [Unknown]

NARRATIVE: CASE EVENT DATE: 20220304
